FAERS Safety Report 5971741-X (Version None)
Quarter: 2008Q4

REPORT INFORMATION
  Report Type: 
  Country: None (occurrence: None)
  Receive Date: 20081201
  Receipt Date: 20081118
  Transmission Date: 20090506
  Serious: Yes (Death, Other)
  Sender: FDA-Public Use
  Company Number: DE-BAYER-200831179GPV

PATIENT
  Age: 36 Year
  Sex: Female

DRUGS (13)
  1. FLUDARABINE PHOSPHATE [Suspect]
     Indication: STEM CELL TRANSPLANT
     Route: 042
     Dates: start: 20060201
  2. ANTITHYMOCYTE GLOBULINE (ATG FRESENIUS) [Concomitant]
     Indication: PROPHYLAXIS AGAINST GRAFT VERSUS HOST DISEASE
     Route: 065
     Dates: start: 20060201
  3. CYCLOSPORINE [Concomitant]
     Indication: IMMUNOSUPPRESSION
     Route: 065
     Dates: start: 20060201
  4. METHOTREXATE [Concomitant]
     Indication: IMMUNOSUPPRESSION
     Route: 065
     Dates: start: 20060201
  5. MYCOPHENOLATE MOFETIL [Concomitant]
     Indication: IMMUNOSUPPRESSION
     Route: 065
  6. TACROLIMUS [Concomitant]
     Indication: IMMUNOSUPPRESSION
     Route: 065
  7. PREDNISOLONE [Concomitant]
     Indication: IMMUNOSUPPRESSION
     Route: 065
     Dates: start: 20050201
  8. PREDNISOLONE [Concomitant]
     Route: 065
     Dates: start: 20060201
  9. PREDNISOLONE [Concomitant]
     Route: 065
     Dates: start: 20060901
  10. AMPHOTERICIN B [Concomitant]
     Indication: ANTIFUNGAL PROPHYLAXIS
     Route: 065
  11. AMPHOTERICIN B [Concomitant]
     Route: 065
     Dates: start: 20060901
  12. VINCRISTINE [Concomitant]
     Indication: LEUKAEMIA RECURRENT
     Route: 065
     Dates: start: 20060901
  13. MERCAPTOPURINE [Concomitant]
     Indication: LEUKAEMIA RECURRENT
     Route: 065
     Dates: start: 20060901

REACTIONS (8)
  - ACUTE GRAFT VERSUS HOST DISEASE IN SKIN [None]
  - FEBRILE NEUTROPENIA [None]
  - FUNGUS SEROLOGY TEST POSITIVE [None]
  - FUSARIUM INFECTION [None]
  - HEPATIC FUNCTION ABNORMAL [None]
  - LIVER ABSCESS [None]
  - LUNG INFILTRATION [None]
  - SKIN NODULE [None]
